FAERS Safety Report 4447984-3 (Version None)
Quarter: 2004Q3

REPORT INFORMATION
  Report Type: 
  Country: None (occurrence: None)
  Receive Date: 20040813
  Receipt Date: 20031210
  Transmission Date: 20050211
  Serious: Yes (Other)
  Sender: FDA-Public Use
  Company Number: PHEH2003US10291

PATIENT
  Age: 94 Year
  Sex: Female

DRUGS (1)
  1. VISUDYNE [Suspect]
     Dosage: 10.2 MG DAILY IV
     Route: 042
     Dates: start: 20031031, end: 20031031

REACTIONS (6)
  - ABDOMINAL PAIN UPPER [None]
  - BLOOD PRESSURE INCREASED [None]
  - DIARRHOEA [None]
  - DYSPEPSIA [None]
  - HEPATIC FUNCTION ABNORMAL [None]
  - NAUSEA [None]
